FAERS Safety Report 24905253 (Version 1)
Quarter: 2025Q1

REPORT INFORMATION
  Report Type: Spontaneous
  Country: US (occurrence: US)
  Receive Date: 20250130
  Receipt Date: 20250130
  Transmission Date: 20250409
  Serious: No
  Sender: PFIZER
  Company Number: US-PFIZER INC-202500018411

PATIENT
  Age: 77 Year
  Sex: Male

DRUGS (6)
  1. BOSULIF [Suspect]
     Active Substance: BOSUTINIB MONOHYDRATE
     Indication: Leukaemia
     Dosage: 200 MG, DAILY
  2. METOPROLOL TARTRATE [Suspect]
     Active Substance: METOPROLOL TARTRATE
     Indication: Blood pressure abnormal
  3. SERTRALINE [Suspect]
     Active Substance: SERTRALINE HYDROCHLORIDE
  4. SIMVASTATIN [Suspect]
     Active Substance: SIMVASTATIN
  5. OMEPRAZOLE [Suspect]
     Active Substance: OMEPRAZOLE
  6. AMLODIPINE [Suspect]
     Active Substance: AMLODIPINE BESYLATE
     Indication: Blood pressure abnormal

REACTIONS (3)
  - Brain fog [Unknown]
  - Confusional state [Unknown]
  - Memory impairment [Unknown]
